FAERS Safety Report 9209500 (Version 2)
Quarter: 2013Q2

REPORT INFORMATION
  Report Type: Spontaneous
  Country: FR (occurrence: FR)
  Receive Date: 20130404
  Receipt Date: 20130427
  Transmission Date: 20140414
  Serious: Yes (Hospitalization)
  Sender: FDA-Public Use
  Company Number: FR-US-EMD SERONO, INC.-7201543

PATIENT
  Age: 18 Year
  Sex: Female

DRUGS (3)
  1. GONAL-F [Suspect]
     Indication: OVULATION INDUCTION
     Route: 058
     Dates: end: 20130307
  2. PUREGON [Suspect]
     Indication: OVULATION INDUCTION
     Route: 058
  3. FOLIC ACID [Concomitant]
     Indication: PRODUCT USED FOR UNKNOWN INDICATION

REACTIONS (1)
  - Paraesthesia [Not Recovered/Not Resolved]
